FAERS Safety Report 17412540 (Version 1)
Quarter: 2020Q1

REPORT INFORMATION
  Report Type: Spontaneous
  Country: US (occurrence: US)
  Receive Date: 20200128
  Receipt Date: 20200128
  Transmission Date: 20200409
  Serious: Yes (Other)
  Sender: FDA-Public Use
  Company Number: None

PATIENT
  Sex: Male

DRUGS (1)
  1. ORALABS COLD SORE TREATMENT [Suspect]
     Active Substance: BENZOCAINE
     Dates: start: 20200108, end: 20200109

REACTIONS (1)
  - Rash [None]

NARRATIVE: CASE EVENT DATE: 20200109
